FAERS Safety Report 4900597-9 (Version None)
Quarter: 2006Q1

REPORT INFORMATION
  Report Type: 
  Country: None (occurrence: None)
  Receive Date: 20060201
  Receipt Date: 20060120
  Transmission Date: 20060701
  Serious: Yes (Hospitalization, Other)
  Sender: FDA-Public Use
  Company Number: KII-2006-0020906

PATIENT
  Age: 25 Year
  Sex: Male

DRUGS (2)
  1. OXYCONTIN [Suspect]
     Indication: INTENTIONAL DRUG MISUSE
     Dosage: INHALATION
     Route: 055
  2. COCAINE (COCAINE) [Suspect]
     Indication: INTENTIONAL DRUG MISUSE
     Dosage: INHALATION
     Route: 055

REACTIONS (7)
  - COMA [None]
  - INTENTIONAL DRUG MISUSE [None]
  - OXYGEN SATURATION DECREASED [None]
  - POLYSUBSTANCE ABUSE [None]
  - PULMONARY OEDEMA [None]
  - SINUS TACHYCARDIA [None]
  - SOMNOLENCE [None]
